FAERS Safety Report 7717790-2 (Version None)
Quarter: 2011Q3

REPORT INFORMATION
  Report Type: 
  Country: None (occurrence: None)
  Receive Date: 20110830
  Receipt Date: 20110818
  Transmission Date: 20111222
  Serious: Yes (Other)
  Sender: FDA-Public Use
  Company Number: FR-BAXTER-2011BH027309

PATIENT
  Age: 37 Year
  Sex: Female

DRUGS (6)
  1. MIRENA [Concomitant]
     Indication: CONTRACEPTION
     Route: 065
  2. EPIRUBICIN HYDROCHLORIDE [Suspect]
     Indication: BREAST CANCER
     Route: 042
     Dates: start: 20110414, end: 20110414
  3. CYCLOPHOSPHAMIDE [Suspect]
     Indication: BREAST CANCER
     Route: 042
     Dates: start: 20110414, end: 20110414
  4. FLUOROURACIL [Suspect]
     Indication: BREAST CANCER
     Route: 042
     Dates: start: 20110414, end: 20110414
  5. CALCIUM CARBONATE [Concomitant]
     Indication: PRODUCT USED FOR UNKNOWN INDICATION
     Route: 048
  6. HERBAL NOS W/MINERALS NOS [Suspect]
     Indication: PROPHYLAXIS
     Route: 048
     Dates: start: 20110401

REACTIONS (1)
  - CYTOLYTIC HEPATITIS [None]
